FAERS Safety Report 6237706-8 (Version None)
Quarter: 2009Q2

REPORT INFORMATION
  Report Type: 
  Country: None (occurrence: None)
  Receive Date: 20090616
  Receipt Date: 20090529
  Transmission Date: 20091009
  Serious: Yes (Hospitalization)
  Sender: FDA-Public Use
  Company Number: 3004972463-2009-00001

PATIENT
  Sex: Male
  Weight: 42 kg

DRUGS (12)
  1. FLUDEOXYGLUCOSE F 18 [Suspect]
     Indication: INVESTIGATION
     Dosage: 15 MCI, ONE IV INJ. (40)
     Dates: start: 20090227
  2. FLUDEOXYGLUCOSE F 18 [Suspect]
     Indication: NEOPLASM MALIGNANT
     Dosage: 15 MCI, ONE IV INJ. (40)
     Dates: start: 20090227
  3. ADVAIR DISKUS 100/50 [Concomitant]
  4. FLUCONAZOLE [Concomitant]
  5. ALBUTEROL SULFATE AUTOHALER [Concomitant]
  6. NEXIUM [Concomitant]
  7. COMBIVENT [Concomitant]
  8. HUMIBID [Concomitant]
  9. COMPAZINE [Concomitant]
  10. TYLENOL (CAPLET) [Concomitant]
  11. BMX SOLUTION [Concomitant]
  12. BACTRIM DS [Concomitant]

REACTIONS (5)
  - ABDOMINAL PAIN UPPER [None]
  - CHRONIC OBSTRUCTIVE PULMONARY DISEASE [None]
  - LUNG DISORDER [None]
  - OROPHARYNGITIS FUNGAL [None]
  - PRODUCT CONTAMINATION MICROBIAL [None]
